FAERS Safety Report 4887689-8 (Version None)
Quarter: 2006Q1

REPORT INFORMATION
  Report Type: 
  Country: None (occurrence: None)
  Receive Date: 20060123
  Receipt Date: 20051228
  Transmission Date: 20060701
  Serious: Yes (Death)
  Sender: FDA-Public Use
  Company Number: JP-AVENTIS-200513918JP

PATIENT
  Age: 71 Year
  Sex: Male
  Weight: 51.7 kg

DRUGS (17)
  1. TAXOTERE [Suspect]
     Indication: OESOPHAGEAL CARCINOMA
     Route: 041
     Dates: start: 20050411, end: 20050411
  2. TAXOTERE [Suspect]
     Route: 041
     Dates: start: 20050418, end: 20050418
  3. TAXOTERE [Suspect]
     Route: 041
     Dates: start: 20050502, end: 20050502
  4. FLUOROURACIL [Suspect]
     Route: 041
     Dates: start: 20050406, end: 20050408
  5. FLUOROURACIL [Suspect]
     Route: 041
     Dates: start: 20050411, end: 20050415
  6. FLUOROURACIL [Suspect]
     Route: 041
     Dates: start: 20050418, end: 20050422
  7. FLUOROURACIL [Suspect]
     Route: 041
     Dates: start: 20050425, end: 20050429
  8. FLUOROURACIL [Suspect]
     Route: 041
     Dates: start: 20050502, end: 20050506
  9. MEROPEN [Concomitant]
     Indication: PNEUMONIA
     Route: 041
     Dates: start: 20050516, end: 20050516
  10. MEROPEN [Concomitant]
     Route: 041
     Dates: start: 20050523, end: 20050523
  11. ALLOID [Concomitant]
     Indication: HAEMORRHAGE
     Route: 048
     Dates: start: 20050401, end: 20050529
  12. ALLOID [Concomitant]
     Indication: PROPHYLAXIS
     Route: 048
     Dates: start: 20050401, end: 20050529
  13. GASTER [Concomitant]
     Indication: PROPHYLAXIS AGAINST GASTROINTESTINAL ULCER
     Route: 048
     Dates: start: 20050401, end: 20050515
  14. CEFMETAZON [Concomitant]
     Indication: PNEUMONIA
     Route: 041
     Dates: start: 20050503, end: 20050507
  15. DUROTEP [Concomitant]
     Indication: OESOPHAGITIS
     Route: 003
     Dates: start: 20050509, end: 20050531
  16. BACTRIM [Concomitant]
     Indication: PNEUMONIA
     Route: 041
     Dates: start: 20050516, end: 20050626
  17. MAXIPIME [Concomitant]
     Indication: PNEUMONIA
     Route: 041
     Dates: start: 20050511, end: 20050513

REACTIONS (12)
  - HICCUPS [None]
  - METASTATIC NEOPLASM [None]
  - NAUSEA [None]
  - OESOPHAGITIS [None]
  - PNEUMOCYSTIS JIROVECI PNEUMONIA [None]
  - PNEUMONIA BACTERIAL [None]
  - PNEUMONIA CYTOMEGALOVIRAL [None]
  - PYREXIA [None]
  - RADIATION FIBROSIS - LUNG [None]
  - RESPIRATORY FAILURE [None]
  - STOMATITIS [None]
  - WHITE BLOOD CELL COUNT DECREASED [None]
